FAERS Safety Report 5287686-7 (Version None)
Quarter: 2007Q2

REPORT INFORMATION
  Report Type: 
  Country: None (occurrence: None)
  Receive Date: 20070405
  Receipt Date: 20070402
  Transmission Date: 20071010
  Serious: Yes (Other)
  Sender: FDA-Public Use
  Company Number: FRWYE324103APR07

PATIENT
  Age: 82 Year
  Sex: Male

DRUGS (2)
  1. TYGACIL [Suspect]
     Indication: STAPHYLOCOCCAL BACTERAEMIA
     Dosage: UNKNOWN
     Route: 042
     Dates: start: 20070326, end: 20070402
  2. TYGACIL [Suspect]
     Indication: OBSTRUCTIVE CHRONIC BRONCHITIS WITH ACUTE EXACERBATION

REACTIONS (1)
  - ADRENAL INSUFFICIENCY [None]
